FAERS Safety Report 9793163 (Version 1)
Quarter: 2013Q4

REPORT INFORMATION
  Report Type: Spontaneous
  Country: US (occurrence: None)
  Receive Date: 20131230
  Receipt Date: 20131230
  Transmission Date: 20140711
  Serious: Yes (Hospitalization)
  Sender: FDA-Public Use
  Company Number: FK201305560

PATIENT
  Age: 62 Year
  Sex: Female

DRUGS (10)
  1. IRINOTECAN (MANUFACTURER UNKNOWN) (IRINOTECAN) (IRINOTECAN) [Suspect]
     Indication: COLORECTAL CANCER METASTATIC
  2. OXALIPLATIN (MANUFACTURER UNKNOWN) (OXALIPLATIN) (OXALIPLATIN) [Suspect]
     Indication: COLORECTAL CANCER METASTATIC
  3. FLUOROURACIL [Suspect]
     Indication: COLORECTAL CANCER METASTATIC
  4. LEUCOVORIN CALCIUM (MANUFACTURER UNKNOWN) (LEUCOVORIN CALCIUM) (LEUCOVORIN CALCIUM) [Suspect]
     Indication: COLORECTAL CANCER METASTATIC
  5. PANITUMUMAB [Suspect]
     Indication: COLORECTAL CANCER METASTATIC
     Dosage: 2 WK
  6. CAPECITABINE [Concomitant]
  7. S-1 (GIMERACIL W/OTERACIL POTASSIUM/TEGAFUR) [Concomitant]
  8. BEVACIZUMAB (BEVACIZUMAB) [Concomitant]
  9. MYTOMYCIN C (ANTINEOPLASTIC AGENTS) [Concomitant]
  10. DEGRADABLE STARCH MICROSPHERES (STARCH) [Concomitant]

REACTIONS (3)
  - Paronychia [None]
  - Neurotoxicity [None]
  - Rash [None]
